FAERS Safety Report 6667146-9 (Version None)
Quarter: 2010Q2

REPORT INFORMATION
  Report Type: 
  Country: None (occurrence: None)
  Receive Date: 20100405
  Receipt Date: 20100325
  Transmission Date: 20101027
  Serious: Yes (Disabling)
  Sender: FDA-Public Use
  Company Number: US-WYE-H11633409

PATIENT
  Sex: Female
  Weight: 70.64 kg

DRUGS (9)
  1. METHYLNALTREXONE BROMIDE [Suspect]
     Indication: CONSTIPATION
     Route: 058
     Dates: start: 20090331, end: 20091015
  2. CYANOCOBALAMIN [Concomitant]
     Indication: PROPHYLAXIS
     Dosage: 1000 MCG IM Q MONTH
     Route: 030
     Dates: start: 20071017
  3. HYDROCHLOROTHIAZIDE [Concomitant]
     Indication: HYPERTENSION
     Route: 048
     Dates: start: 20100215
  4. FLECTOR [Concomitant]
     Indication: MULTIPLE SCLEROSIS
     Dosage: 1/3% 1 PATCH BID
     Route: 062
     Dates: start: 20080801
  5. FLEXERIL [Concomitant]
     Indication: INSOMNIA
     Route: 048
     Dates: start: 20090910
  6. NORCO [Concomitant]
     Indication: MULTIPLE SCLEROSIS
     Dosage: 10/325 MG 1-5 TIMES DAILY
     Route: 048
     Dates: start: 20090128
  7. TIZANIDINE HCL [Concomitant]
     Indication: MULTIPLE SCLEROSIS
     Route: 048
     Dates: start: 20080804
  8. AVONEX [Concomitant]
     Indication: MULTIPLE SCLEROSIS
     Dosage: 30 MCG IM Q WEEK
     Route: 030
     Dates: start: 20070713, end: 20091106
  9. AVONEX [Concomitant]
     Dosage: 30 MCG IM Q WEEK
     Route: 030
     Dates: start: 20100204

REACTIONS (4)
  - CHOROIDITIS [None]
  - HEPATIC LESION [None]
  - LUNG NEOPLASM [None]
  - MACULAR DEGENERATION [None]
